FAERS Safety Report 5390970-X (Version None)
Quarter: 2007Q3

REPORT INFORMATION
  Report Type: 
  Country: None (occurrence: None)
  Receive Date: 20070719
  Receipt Date: 20070709
  Transmission Date: 20080115
  Serious: Yes (Hospitalization, Other)
  Sender: FDA-Public Use
  Company Number: GB-JNJFOC-20070701941

PATIENT
  Sex: Female
  Weight: 85 kg

DRUGS (7)
  1. REMICADE [Suspect]
     Indication: RHEUMATOID ARTHRITIS
     Route: 042
  2. CITALOPRAM HYDROBROMIDE [Concomitant]
  3. CO-DYDRAMOL [Concomitant]
  4. FOLIC ACID [Concomitant]
  5. METHOTREXATE [Concomitant]
  6. LEVOTHYROXINE SODIUM [Concomitant]
  7. VOLTAREN [Concomitant]

REACTIONS (1)
  - DISLOCATION OF JOINT PROSTHESIS [None]
